FAERS Safety Report 4589675-4 (Version None)
Quarter: 2005Q1

REPORT INFORMATION
  Report Type: 
  Country: None (occurrence: None)
  Receive Date: 20050217
  Receipt Date: 20050206
  Transmission Date: 20050727
  Serious: Yes (Hospitalization, Disabling)
  Sender: FDA-Public Use
  Company Number: CERZ-10767

PATIENT
  Age: 74 Year
  Sex: Male
  Weight: 75 kg

DRUGS (5)
  1. CEREZYME [Suspect]
     Indication: GAUCHER'S DISEASE
     Dosage: 2200 UNITS Q2WKS IV
     Route: 042
     Dates: start: 20030804
  2. TRITACE [Concomitant]
  3. LIPITOR [Concomitant]
  4. NITROLINGUAL [Concomitant]
  5. NITRODERM [Concomitant]

REACTIONS (2)
  - FALL [None]
  - FEMUR FRACTURE [None]
